FAERS Safety Report 10345029 (Version 1)
Quarter: 2014Q3

REPORT INFORMATION
  Report Type: Spontaneous
  Country: US (occurrence: None)
  Receive Date: 20140725
  Receipt Date: 20140725
  Transmission Date: 20150326
  Serious: Yes (Life-Threatening, Hospitalization)
  Sender: FDA-Public Use
  Company Number: None

PATIENT
  Age: 25 Year
  Sex: Male
  Weight: 76.2 kg

DRUGS (1)
  1. ZOLPIDEM [Suspect]
     Active Substance: ZOLPIDEM\ZOLPIDEM TARTRATE
     Indication: DEPRESSION
     Dosage: UNKNOWN MG
     Route: 048
     Dates: start: 20140717, end: 20140717

REACTIONS (6)
  - Incorrect dose administered [None]
  - Disinhibition [None]
  - Partner stress [None]
  - Loss of consciousness [None]
  - Self-medication [None]
  - Suicide attempt [None]

NARRATIVE: CASE EVENT DATE: 20140717
